FAERS Safety Report 8613286-4 (Version None)
Quarter: 2012Q3

REPORT INFORMATION
  Report Type: 
  Country: None (occurrence: None)
  Receive Date: 20120822
  Receipt Date: 20120803
  Transmission Date: 20120928
  Serious: Yes (Hospitalization)
  Sender: FDA-Public Use
  Company Number: JP-009507513-1208JPN003781

PATIENT

DRUGS (7)
  1. VOLTAREN [Concomitant]
     Indication: PROPHYLAXIS
     Dosage: 12.5MG/DAY, AS NEEDED.
     Route: 054
     Dates: start: 20120521
  2. TELAVIC [Suspect]
     Indication: HEPATITIS C
     Route: 048
     Dates: start: 20120521, end: 20120624
  3. PEG-INTRON [Suspect]
     Indication: HEPATITIS C
     Dosage: 1.5MCG/KG/WEEK
     Route: 058
     Dates: start: 20120521
  4. MUCOSTA [Concomitant]
     Indication: PROPHYLAXIS
     Route: 048
     Dates: start: 20120529
  5. REBETOL [Suspect]
     Indication: HEPATITIS C
     Route: 048
     Dates: start: 20120521, end: 20120617
  6. REBETOL [Suspect]
     Route: 048
     Dates: start: 20120618
  7. TELAVIC [Suspect]
     Route: 048
     Dates: start: 20120625

REACTIONS (2)
  - MALAISE [None]
  - NAUSEA [None]
